FAERS Safety Report 9011544 (Version 1)
Quarter: 2013Q1

REPORT INFORMATION
  Report Type: Spontaneous
  Country: FR (occurrence: FR)
  Receive Date: 20130111
  Receipt Date: 20130111
  Transmission Date: 20140127
  Serious: Yes (Other)
  Sender: FDA-Public Use
  Company Number: FR-UCBSA-068625

PATIENT
  Age: 12 Year
  Sex: Male
  Weight: 46 kg

DRUGS (4)
  1. VIMPAT [Suspect]
     Indication: FRONTAL LOBE EPILEPSY
     Route: 048
     Dates: start: 20120416, end: 2012
  2. VIMPAT [Suspect]
     Indication: FRONTAL LOBE EPILEPSY
     Dates: start: 2012, end: 20120618
  3. SODIUM VALPROATE [Concomitant]
     Indication: EPILEPSY
     Dosage: 250 MG +250MG+500 MG
     Dates: start: 2007
  4. OXCARBAZEPINE [Concomitant]
     Indication: EPILEPSY
     Dosage: 450 MG+300 MG+450 MG
     Dates: start: 2009

REACTIONS (2)
  - Convulsion [Recovered/Resolved]
  - Urinary incontinence [Recovered/Resolved]
